FAERS Safety Report 18118671 (Version 1)
Quarter: 2020Q3

REPORT INFORMATION
  Report Type: Spontaneous
  Country: US (occurrence: US)
  Receive Date: 20200806
  Receipt Date: 20200806
  Transmission Date: 20201103
  Serious: Yes (Disabling)
  Sender: FDA-Public Use
  Company Number: None

PATIENT
  Age: 8 Year
  Sex: Male
  Weight: 20.25 kg

DRUGS (4)
  1. TRANSDERM SCOP [Suspect]
     Active Substance: SCOPOLAMINE
     Indication: APTYALISM
     Dosage: ?          OTHER FREQUENCY:3 DAY PATCH;?
     Route: 062
     Dates: start: 20190727, end: 20190815
  2. GLYCOPYRROLATE. [Concomitant]
     Active Substance: GLYCOPYRROLATE
  3. PHENYTOIN. [Concomitant]
     Active Substance: PHENYTOIN
  4. MELATONIN [Concomitant]
     Active Substance: MELATONIN

REACTIONS (7)
  - Temperature regulation disorder [None]
  - Agitation [None]
  - Pain [None]
  - Seizure like phenomena [None]
  - Restlessness [None]
  - Urine output decreased [None]
  - Pyrexia [None]
